FAERS Safety Report 5876156-0 (Version None)
Quarter: 2008Q3

REPORT INFORMATION
  Report Type: 
  Country: None (occurrence: None)
  Receive Date: 20080908
  Receipt Date: 20080825
  Transmission Date: 20090109
  Serious: Yes (Life-Threatening, Hospitalization)
  Sender: FDA-Public Use
  Company Number: A-NJ2008-21542

PATIENT
  Age: 69 Year
  Sex: Female
  Weight: 113.4 kg

DRUGS (10)
  1. TRACLEER (BOSTEN TABLET 62.5 MG US) TABLET [Suspect]
     Indication: PULMONARY HYPERTENSION
     Dosage: 62.5 MG, BID, ORAL
     Route: 048
     Dates: start: 20080810, end: 20080811
  2. COUMADIN [Concomitant]
  3. DIOVAN [Concomitant]
  4. VERAPAMIL [Concomitant]
  5. NEXIUM [Concomitant]
  6. ADVAIR DISKUS 100/50 [Concomitant]
  7. POTASSIUM CHLORIDE [Concomitant]
  8. LASIX [Concomitant]
  9. CELEBREX [Concomitant]
  10. NASONEX [Concomitant]

REACTIONS (9)
  - ABASIA [None]
  - ANAPHYLACTIC REACTION [None]
  - DYSPNOEA [None]
  - EYE SWELLING [None]
  - MUSCULAR WEAKNESS [None]
  - OEDEMA MOUTH [None]
  - OEDEMA PERIPHERAL [None]
  - OFF LABEL USE [None]
  - SWOLLEN TONGUE [None]
